FAERS Safety Report 5637404-5 (Version None)
Quarter: 2008Q1

REPORT INFORMATION
  Report Type: 
  Country: None (occurrence: None)
  Receive Date: 20080225
  Receipt Date: 20080218
  Transmission Date: 20080703
  Serious: Yes (Other)
  Sender: FDA-Public Use
  Company Number: AU-AVENTIS-200811597GDDC

PATIENT
  Age: 41 Year
  Sex: Female

DRUGS (11)
  1. LANTUS [Suspect]
     Route: 058
     Dates: start: 20070101
  2. AUTOPEN INSULIN INJECTION PEN [Suspect]
  3. NOVORAPID [Concomitant]
  4. PAROXETINE HCL [Concomitant]
  5. DIAFORMIN [Concomitant]
  6. OROXINE [Concomitant]
  7. ASTRIX [Concomitant]
  8. COVERSYL                           /00790701/ [Concomitant]
  9. LIPITOR [Concomitant]
  10. NEXIUM [Concomitant]
  11. FUROSEMIDE [Concomitant]

REACTIONS (2)
  - BLOOD GLUCOSE FLUCTUATION [None]
  - PNEUMONIA [None]
